FAERS Safety Report 6663459-5 (Version None)
Quarter: 2010Q2

REPORT INFORMATION
  Report Type: 
  Country: None (occurrence: None)
  Receive Date: 20100401
  Receipt Date: 20100323
  Transmission Date: 20101027
  Serious: Yes (Other)
  Sender: FDA-Public Use
  Company Number: JP-PFIZER INC-2010036062

PATIENT
  Age: 69 Year
  Sex: Male

DRUGS (3)
  1. NORVASC [Suspect]
     Dosage: 5 MG, 1X/DAY
     Route: 048
     Dates: start: 20040602, end: 20100101
  2. MUCOSTA [Concomitant]
     Dosage: UNK
     Dates: start: 20090327
  3. PROHEPARUM [Concomitant]
     Dosage: UNK
     Route: 048
     Dates: start: 20081003

REACTIONS (1)
  - TOXIC SKIN ERUPTION [None]
